FAERS Safety Report 6639152-1 (Version None)
Quarter: 2010Q1

REPORT INFORMATION
  Report Type: 
  Country: None (occurrence: None)
  Receive Date: 20100312
  Receipt Date: 20100304
  Transmission Date: 20100710
  Serious: Yes (Death, Hospitalization)
  Sender: FDA-Public Use
  Company Number: 96237

PATIENT
  Age: 13 Month
  Sex: Male

DRUGS (2)
  1. CYTARABINE [Suspect]
     Indication: ACUTE LYMPHOCYTIC LEUKAEMIA
     Dosage: INTRATHECAL
     Route: 037
  2. METHOTREXATE [Suspect]
     Indication: ACUTE LYMPHOCYTIC LEUKAEMIA
     Dosage: INTRATHECAL
     Route: 037

REACTIONS (9)
  - BLOOD BILIRUBIN INCREASED [None]
  - CAECITIS [None]
  - CARDIOPULMONARY FAILURE [None]
  - COMA [None]
  - GENERAL PHYSICAL HEALTH DETERIORATION [None]
  - HYPERAMMONAEMIC ENCEPHALOPATHY [None]
  - METABOLIC ALKALOSIS [None]
  - PUPIL FIXED [None]
  - RESPIRATORY ALKALOSIS [None]
